FAERS Safety Report 20381939 (Version 2)
Quarter: 2022Q1

REPORT INFORMATION
  Report Type: Spontaneous
  Country: US (occurrence: US)
  Receive Date: 20220127
  Receipt Date: 20220315
  Transmission Date: 20220424
  Serious: Yes (Other)
  Sender: FDA-Public Use
  Company Number: US-BAYER-2022A012625

PATIENT
  Age: 58 Year
  Sex: Male

DRUGS (3)
  1. ASPIRIN [Suspect]
     Active Substance: ASPIRIN
     Dosage: 81 MG, QD ( 81 MG DAILY)
     Dates: start: 2013, end: 202005
  2. ASPIRIN [Suspect]
     Active Substance: ASPIRIN
     Dosage: UNK
  3. WARFARIN [Concomitant]
     Active Substance: WARFARIN

REACTIONS (5)
  - Melaena [None]
  - Haematemesis [None]
  - Gastrointestinal haemorrhage [Not Recovered/Not Resolved]
  - Gastrointestinal arteriovenous malformation [None]
  - Labelled drug-drug interaction medication error [None]
